FAERS Safety Report 5193821-1 (Version None)
Quarter: 2006Q4

REPORT INFORMATION
  Report Type: 
  Country: None (occurrence: None)
  Receive Date: 20061221
  Receipt Date: 20061212
  Transmission Date: 20070319
  Serious: Yes (Hospitalization)
  Sender: FDA-Public Use
  Company Number: T200601448

PATIENT
  Age: 48 Year
  Sex: Male
  Weight: 80.7 kg

DRUGS (14)
  1. METHADOSE [Suspect]
     Dosage: 20 MG, BID, ORAL
     Route: 048
     Dates: start: 20060110
  2. CELEBREX [Suspect]
     Dosage: 100 MG, BID, ORAL
     Route: 048
     Dates: start: 20060110, end: 20060215
  3. SU 11248 (SU 11248) 50 MG [Suspect]
     Indication: RENAL CELL CARCINOMA STAGE UNSPECIFIED
     Dosage: 50 MG, QD, ORAL
     Route: 048
     Dates: start: 20060124
  4. PERCOCET [Suspect]
     Dosage: 2 TABS ( 1 IN 4HR), ORAL
     Route: 048
     Dates: start: 20060110, end: 20060215
  5. BACLOFEN [Suspect]
     Dosage: 10 MG, TID, ORAL
     Route: 048
     Dates: start: 20060110, end: 20060215
  6. MINOCYCLINE HCL [Concomitant]
  7. LEXAPRO [Concomitant]
  8. PROTONIX  /012653201/ (PANTOPRAZOLE) [Concomitant]
  9. AMBIEN [Concomitant]
  10. NEURONTIN [Concomitant]
  11. COMPAZINE  /00013302/ (PROCHLORPERAZINE EDISYLATE) [Concomitant]
  12. SENNA /00142201/ (SENNA ALEXANDRINA) [Concomitant]
  13. LACTULOSE [Concomitant]
  14. COLACE (DOCUSATE SODIUM) [Concomitant]

REACTIONS (4)
  - CONFUSIONAL STATE [None]
  - DISORIENTATION [None]
  - ENCEPHALOPATHY [None]
  - HYPERTENSION [None]
